FAERS Safety Report 13816344 (Version 1)
Quarter: 2017Q3

REPORT INFORMATION
  Report Type: Spontaneous
  Country: US (occurrence: US)
  Receive Date: 20170731
  Receipt Date: 20170731
  Transmission Date: 20171127
  Serious: No
  Sender: FDA-Public Use
  Company Number: US-TARO-2017TAR00482

PATIENT
  Age: 55 Year
  Sex: Male
  Weight: 83.9 kg

DRUGS (3)
  1. FLUOCINONIDE CREAM USP 0.1% [Suspect]
     Active Substance: FLUOCINONIDE
     Indication: PSORIASIS
     Dosage: UNK
     Dates: start: 201706
  2. FLUOCINONIDE CREAM USP 0.1% [Suspect]
     Active Substance: FLUOCINONIDE
     Indication: PSORIASIS
     Dosage: UNK UNK, AS NEEDED
     Route: 061
     Dates: start: 201705
  3. CALCIPOTRIENE. [Concomitant]
     Active Substance: CALCIPOTRIENE
     Indication: PSORIASIS

REACTIONS (4)
  - Product quality issue [Unknown]
  - Skin discolouration [Unknown]
  - Drug ineffective [Unknown]
  - Expired product administered [Not Recovered/Not Resolved]

NARRATIVE: CASE EVENT DATE: 201705
